FAERS Safety Report 8419847-X (Version None)
Quarter: 2012Q2

REPORT INFORMATION
  Report Type: 
  Country: None (occurrence: None)
  Receive Date: 20120607
  Receipt Date: 20120604
  Transmission Date: 20120825
  Serious: No
  Sender: FDA-Public Use
  Company Number: US-PFIZER INC-2012134280

PATIENT
  Sex: Female
  Weight: 80.726 kg

DRUGS (2)
  1. GENOTROPIN [Suspect]
     Indication: GROWTH HORMONE DEFICIENCY
     Dosage: 0.5 MG, 1X/DAY
     Route: 030
     Dates: end: 20111201
  2. GENOTROPIN [Suspect]
     Dosage: 0.6 MG, 1X/DAY
     Route: 030
     Dates: start: 20111201, end: 20120602

REACTIONS (3)
  - INCORRECT ROUTE OF DRUG ADMINISTRATION [None]
  - TREMOR [None]
  - HEADACHE [None]
